FAERS Safety Report 9167400 (Version 2)
Quarter: 2013Q2

REPORT INFORMATION
  Report Type: Spontaneous
  Country: GB (occurrence: GB)
  Receive Date: 20130318
  Receipt Date: 20130401
  Transmission Date: 20140414
  Serious: Yes (Hospitalization)
  Sender: FDA-Public Use
  Company Number: GB-JNJFOC-20130303604

PATIENT
  Age: 43 Year
  Sex: Male

DRUGS (3)
  1. STELARA [Suspect]
     Indication: PSORIASIS
     Route: 058
     Dates: start: 20110118
  2. FEXOFENADINE [Concomitant]
     Route: 048
     Dates: start: 20130122
  3. OMEPRAZOLE [Concomitant]
     Route: 048

REACTIONS (4)
  - Face oedema [Recovered/Resolved]
  - Urticaria [Recovered/Resolved]
  - Psoriasis [Unknown]
  - Rash papular [Recovered/Resolved]
